FAERS Safety Report 21394905 (Version 1)
Quarter: 2022Q3

REPORT INFORMATION
  Report Type: Report from Study
  Country: IT (occurrence: IT)
  Receive Date: 20220930
  Receipt Date: 20220930
  Transmission Date: 20221027
  Serious: Yes (Hospitalization)
  Sender: FDA-Public Use
  Company Number: None

PATIENT
  Age: 72 Year
  Sex: Female

DRUGS (2)
  1. DOXORUBICIN HYDROCHLORIDE [Suspect]
     Active Substance: DOXORUBICIN HYDROCHLORIDE
     Indication: Product used for unknown indication
     Dosage: THERAPY END DATE : NASK
     Dates: start: 20220728
  2. TRABECTEDIN [Suspect]
     Active Substance: TRABECTEDIN
     Indication: Product used for unknown indication
     Dosage: FIRST CYCLE OF CHEMOTHERAPY, THERAPY END DATE : NASK
     Dates: start: 20220728

REACTIONS (2)
  - Thrombocytopenia [Unknown]
  - Neutropenia [Unknown]

NARRATIVE: CASE EVENT DATE: 20220808
